FAERS Safety Report 7680417-2 (Version None)
Quarter: 2011Q3

REPORT INFORMATION
  Report Type: 
  Country: None (occurrence: None)
  Receive Date: 20110812
  Receipt Date: 20110810
  Transmission Date: 20111222
  Serious: Yes (Death, Other)
  Sender: FDA-Public Use
  Company Number: CO-PFIZER INC-2011103202

PATIENT
  Age: 83 Year
  Sex: Male

DRUGS (2)
  1. NORVASC [Suspect]
     Indication: HYPERTENSION
     Dosage: 5 MG, 1X/DAY
     Route: 048
     Dates: start: 20090101
  2. PREGABALIN [Suspect]
     Indication: PAIN IN EXTREMITY
     Dosage: UNK

REACTIONS (2)
  - DEATH [None]
  - ARTERIOSCLEROSIS [None]
